FAERS Safety Report 4435443-3 (Version None)
Quarter: 2004Q3

REPORT INFORMATION
  Report Type: 
  Country: None (occurrence: None)
  Receive Date: 20040826
  Receipt Date: 20040810
  Transmission Date: 20050211
  Serious: Yes (Death, Hospitalization)
  Sender: FDA-Public Use
  Company Number: B0342347A

PATIENT
  Age: 32 Year
  Sex: Female

DRUGS (3)
  1. EPIVIR [Suspect]
  2. RETROVIR [Suspect]
  3. SAQUINAVIR + RITONAVIR (FORMULATION UNKNOWN) (SAQUINAVIR + RETIONAVIR) [Suspect]

REACTIONS (9)
  - CIRCULATORY COLLAPSE [None]
  - COMMUNICATION DISORDER [None]
  - CSF PROTEIN ABNORMAL [None]
  - CSF WHITE BLOOD CELL COUNT POSITIVE [None]
  - ENCEPHALITIS VIRAL [None]
  - ENCEPHALOPATHY [None]
  - HYPERPLASIA [None]
  - IMMUNE RECONSTITUTION SYNDROME [None]
  - SOCIAL AVOIDANT BEHAVIOUR [None]
